FAERS Safety Report 9199277 (Version 1)
Quarter: 2013Q1

REPORT INFORMATION
  Report Type: Spontaneous
  Country: US (occurrence: None)
  Receive Date: 20130325
  Receipt Date: 20130325
  Transmission Date: 20140127
  Serious: Yes (Other)
  Sender: FDA-Public Use
  Company Number: 2013US-004571

PATIENT
  Age: 56 Year
  Sex: Female

DRUGS (27)
  1. OMONTYS (PEGINESATIDE) SOLUTION FOR INJECTION [Suspect]
     Indication: NEPHROGENIC ANAEMIA
     Route: 042
     Dates: start: 20130209, end: 20130209
  2. PROCRIT [Concomitant]
  3. ZEMPLAR (PARICALCITOL) [Concomitant]
  4. CLONIDINE (CLONIDINE) [Concomitant]
  5. PROMETHAZINE (PROMETHAZINE) [Concomitant]
  6. FLUOXETINE (FLUOXETINE) [Concomitant]
  7. KADIAN (MORPHINE SULFATE) [Concomitant]
  8. ATIVAN (LORAZEPAM) [Concomitant]
  9. XANAX (ALPRAZOLAM) [Concomitant]
  10. IMODIUM (LOPERAMIDE HYDROCHLORIDE) [Concomitant]
  11. METAMUCIL (PLANTAGO OVATA) [Concomitant]
  12. NOVOLOG (INSULIN ASPART) [Concomitant]
  13. CHOLESTYRAMINE/ASPARTAME [Concomitant]
  14. NEPHROCAPS (ASCORBIC ACID, BIOTIN, CYANOCOBALAMIN, FOLIC ACID, NICOTINAMIDE, PANTOTHENIC ACID, PYRIDOXINE HYDROCHLORIDE, RIBOFLAVIN, THIAMINE HYDROCHLORIDE) [Concomitant]
  15. NORVASC (AMLODIPINE BESILATE) [Concomitant]
  16. FOLIC ACID (FOLIC ACID) [Concomitant]
  17. COREG (CARVEDILOL) [Concomitant]
  18. PERCOCET (OXYCODONE HYDROCHLORIDE, OXYCODONE TEREPHTHALATE, PARACETAMOL) [Concomitant]
  19. IMDUR (ISOSORBIDE MONONITRATE) [Concomitant]
  20. ASPIRIN (ACETYLSALICYLIC ACID) [Concomitant]
  21. NITROGLYCERIN (GLYCERYL TRINITRATE) [Concomitant]
  22. DUONEB (IPRATROPIUM BROMIDE, SALBUTAMOL SULFATE) [Concomitant]
  23. NEURONTIN (GABAPENTIN) [Concomitant]
  24. PLAVIX (CLOPIDOGREL BISULFATE) [Concomitant]
  25. ADVAIR (FLUTICASONE PROPIONATE, SALMETEROL XINAFOATE) [Concomitant]
  26. RENAGEL (SEVELAMER) [Concomitant]
  27. PHOSLO (CALCIUM ACETATE) [Concomitant]

REACTIONS (13)
  - Swelling face [None]
  - Slow response to stimuli [None]
  - Dyskinesia [None]
  - Tachycardia [None]
  - Chest pain [None]
  - Dyspnoea [None]
  - Hypotension [None]
  - Erythema [None]
  - Lip swelling [None]
  - Burning sensation [None]
  - Hypokalaemia [None]
  - Electrocardiogram T wave inversion [None]
  - Drug hypersensitivity [None]
